FAERS Safety Report 5076469-9 (Version None)
Quarter: 2006Q3

REPORT INFORMATION
  Report Type: 
  Country: None (occurrence: None)
  Receive Date: 20060725
  Receipt Date: 20060501
  Transmission Date: 20061208
  Serious: No
  Sender: FDA-Public Use
  Company Number: 200613198BWH

PATIENT
  Age: 45 Year
  Sex: Female

DRUGS (4)
  1. NEXAVAR [Suspect]
     Indication: SMALL CELL LUNG CANCER STAGE UNSPECIFIED
     Dosage: SEE IMAGE
     Route: 048
     Dates: start: 20060421
  2. KLONOPIN [Concomitant]
  3. AMITRIPTYLINE HCL [Concomitant]
  4. MORPHINE SULFATE [Concomitant]

REACTIONS (9)
  - AGEUSIA [None]
  - ANOREXIA [None]
  - FATIGUE [None]
  - GLOSSODYNIA [None]
  - HYPOAESTHESIA [None]
  - PAIN IN EXTREMITY [None]
  - PALMAR-PLANTAR ERYTHRODYSAESTHESIA SYNDROME [None]
  - PARAESTHESIA [None]
  - PRURITUS [None]
